FAERS Safety Report 19765323 (Version 4)
Quarter: 2022Q2

REPORT INFORMATION
  Report Type: Spontaneous
  Country: IN (occurrence: IN)
  Receive Date: 20210830
  Receipt Date: 20220614
  Transmission Date: 20220721
  Serious: Yes (Other)
  Sender: FDA-Public Use
  Company Number: IN-PFIZER INC-202101058746

PATIENT
  Age: 60 Year
  Sex: Female

DRUGS (1)
  1. CRIZOTINIB [Suspect]
     Active Substance: CRIZOTINIB
     Indication: Non-small cell lung cancer metastatic
     Dosage: 250 MG, 1X/DAY
     Route: 048
     Dates: start: 20160827

REACTIONS (5)
  - Arthropathy [Unknown]
  - Dysphagia [Unknown]
  - Weight decreased [Unknown]
  - Neoplasm progression [Unknown]
  - Endometrial thickening [Unknown]
